FAERS Safety Report 20400342 (Version 2)
Quarter: 2022Q1

REPORT INFORMATION
  Report Type: Spontaneous
  Country: US (occurrence: US)
  Receive Date: 20220131
  Receipt Date: 20220201
  Transmission Date: 20220423
  Serious: No
  Sender: FDA-Public Use
  Company Number: US-ABBVIE-21K-163-4047689-00

PATIENT
  Age: 67 Year
  Sex: Female
  Weight: 70.370 kg

DRUGS (10)
  1. HUMIRA [Suspect]
     Active Substance: ADALIMUMAB
     Indication: Polymyalgia rheumatica
     Route: 058
  2. METHOTREXATE [Concomitant]
     Active Substance: METHOTREXATE
     Indication: Polymyalgia rheumatica
  3. Prednisone (NON-ABBVIE) [Concomitant]
     Indication: Polymyalgia rheumatica
  4. Meloxicam (NON-ABBVIE) [Concomitant]
     Indication: Polymyalgia rheumatica
  5. Folic acid (NON-ABBVIE) [Concomitant]
     Indication: Polymyalgia rheumatica
  6. Baby aspirin (NON-ABBVIE) [Concomitant]
     Indication: Polymyalgia rheumatica
  7. Amitriptyline (NON-ABBVIE) [Concomitant]
     Indication: Product used for unknown indication
  8. Trazodone (NON-ABBVIE) [Concomitant]
     Indication: Sleep disorder therapy
  9. Dicyclomine (NON-ABBVIE) [Concomitant]
     Indication: Gastrooesophageal reflux disease
  10. Ocuvite (NON-ABBVIE) [Concomitant]
     Indication: Eye disorder

REACTIONS (6)
  - Foot and mouth disease [Not Recovered/Not Resolved]
  - Blister [Not Recovered/Not Resolved]
  - Pain [Not Recovered/Not Resolved]
  - Gait disturbance [Not Recovered/Not Resolved]
  - Off label use [Not Recovered/Not Resolved]
  - COVID-19 [Recovered/Resolved]

NARRATIVE: CASE EVENT DATE: 20210101
